FAERS Safety Report 18177012 (Version 3)
Quarter: 2021Q3

REPORT INFORMATION
  Report Type: Report from Study
  Country: None (occurrence: CO)
  Receive Date: 20200821
  Receipt Date: 20210813
  Transmission Date: 20211014
  Serious: Yes (Hospitalization, Other)
  Sender: FDA-Public Use
  Company Number: CO-ABBVIE-20K-036-3416625-00

PATIENT
  Sex: Female
  Weight: 71 kg

DRUGS (3)
  1. HUMIRA [Suspect]
     Active Substance: ADALIMUMAB
     Indication: RHEUMATOID ARTHRITIS
     Route: 058
     Dates: end: 2020
  2. HUMIRA [Suspect]
     Active Substance: ADALIMUMAB
     Route: 058
     Dates: end: 20210713
  3. HUMIRA [Suspect]
     Active Substance: ADALIMUMAB
     Indication: RHEUMATOID ARTHRITIS
     Route: 058
     Dates: start: 20120326

REACTIONS (18)
  - Lumbar hernia [Recovering/Resolving]
  - Unevaluable event [Unknown]
  - Intervertebral disc space narrowing [Unknown]
  - Osteoporosis [Recovering/Resolving]
  - Infection [Unknown]
  - Sjogren^s syndrome [Recovering/Resolving]
  - Sinusitis [Recovering/Resolving]
  - Post-traumatic pain [Recovering/Resolving]
  - Laryngitis [Recovering/Resolving]
  - Limb injury [Recovering/Resolving]
  - Choking [Unknown]
  - Blood pressure abnormal [Unknown]
  - Skin laceration [Unknown]
  - Pruritus [Unknown]
  - Intervertebral disc disorder [Recovering/Resolving]
  - Restlessness [Unknown]
  - Spinal pain [Recovering/Resolving]
  - Pharyngitis [Recovering/Resolving]

NARRATIVE: CASE EVENT DATE: 2015
